FAERS Safety Report 8243665-9 (Version None)
Quarter: 2012Q1

REPORT INFORMATION
  Report Type: 
  Country: None (occurrence: None)
  Receive Date: 20120309
  Receipt Date: 20110120
  Transmission Date: 20120608
  Serious: Yes (Other)
  Sender: FDA-Public Use
  Company Number: AUR-APL-2011-00273

PATIENT
  Sex: Male

DRUGS (1)
  1. METFORMIN HCL [Suspect]
     Indication: PRODUCT USED FOR UNKNOWN INDICATION
     Dosage: ONE 500MG TABS IN THE MORNING, TWO 500MG TABS AT NIGHT, UNKNOWN

REACTIONS (1)
  - DIABETES MELLITUS INADEQUATE CONTROL [None]
